FAERS Safety Report 6766466-7 (Version None)
Quarter: 2010Q2

REPORT INFORMATION
  Report Type: 
  Country: None (occurrence: None)
  Receive Date: 20100611
  Receipt Date: 20100602
  Transmission Date: 20101027
  Serious: Yes (Hospitalization)
  Sender: FDA-Public Use
  Company Number: GXKR2010GB06178

PATIENT
  Age: 46 Year
  Sex: Female

DRUGS (21)
  1. SIMVASTATIN (NGX) [Suspect]
     Dosage: 20 MG, DAILY
     Route: 065
  2. SIMVASTATIN (NGX) [Interacting]
     Dosage: 40 MG, DAILY
     Route: 065
  3. FUSIDIC ACID [Interacting]
     Indication: INFECTION
     Route: 065
  4. ISOPHANE INSULIN [Concomitant]
     Indication: DIABETES MELLITUS
     Route: 065
  5. PENICILLIN V [Concomitant]
     Dosage: 250 MG, QID
     Route: 065
  6. FLOXACILLIN SODIUM [Concomitant]
     Dosage: 500 MG, QID
     Route: 065
  7. GENTAMICIN [Concomitant]
     Route: 065
  8. WARFARIN [Concomitant]
     Route: 065
  9. ACETYLSALICYLIC ACID [Concomitant]
     Dosage: 75 MG, UNK
     Route: 065
  10. CLONAZEPAM [Concomitant]
     Dosage: 1 MG, UNK
     Route: 065
  11. DILTIAZEM [Concomitant]
     Dosage: 200 MG, UNK
     Route: 065
  12. DILTIAZEM [Concomitant]
     Dosage: 200 MG, UNK
     Route: 065
  13. SERTRALINE HCL [Concomitant]
     Dosage: 50 MG/DAY
     Route: 065
  14. NICORANDIL [Concomitant]
     Dosage: 20 MG, BID
     Route: 065
  15. ALU-CAP [Concomitant]
     Dosage: 475 MG, TID
     Route: 065
  16. CALCIUM ACETATE [Concomitant]
     Dosage: 2 G, TID
     Route: 065
  17. IRON [Concomitant]
     Dosage: 100 MG, WEEKLY
     Route: 065
  18. EPOGEN [Concomitant]
     Dosage: 4000 U, UNK
     Route: 065
  19. ALFACALCIDOL [Concomitant]
     Dosage: 1 UG, UNK
     Route: 065
  20. OROVITE [Concomitant]
     Dosage: 1 DF, UNK
     Route: 065
  21. FOLIC ACID [Concomitant]
     Dosage: 5 MG, UNK
     Route: 065

REACTIONS (6)
  - BLOOD CREATINE PHOSPHOKINASE INCREASED [None]
  - DRUG INTERACTION [None]
  - HYPOTONIA [None]
  - MUSCULAR WEAKNESS [None]
  - PARAPARESIS [None]
  - RHABDOMYOLYSIS [None]
